FAERS Safety Report 9220037 (Version 1)
Quarter: 2013Q1

REPORT INFORMATION
  Report Type: Spontaneous
  Country: US (occurrence: None)
  Receive Date: 20120830
  Receipt Date: 20120830
  Transmission Date: 20140127
  Serious: Yes (Other)
  Sender: FDA-Public Use
  Company Number: US008564

PATIENT
  Age: 62 Year
  Sex: Female

DRUGS (3)
  1. GABITRIL (TIAGABINE) [Suspect]
     Indication: CONVULSION
     Route: 048
     Dates: start: 19990109, end: 19990130
  2. TEGRETOL [Concomitant]
  3. KLONOPIN [Concomitant]

REACTIONS (2)
  - Convulsion [None]
  - Anosmia [None]
